FAERS Safety Report 6904577 (Version 17)
Quarter: 2014Q2

REPORT INFORMATION
  Report Type: Spontaneous
  Country: US (occurrence: US)
  Receive Date: 20090209
  Receipt Date: 20140523
  Transmission Date: 20141212
  Serious: Yes (Hospitalization, Other)
  Sender: FDA-Public Use
  Company Number: PHEH2009US01388

PATIENT
  Age: 63 Year
  Sex: Female

DRUGS (39)
  1. AREDIA [Suspect]
     Indication: PLASMA CELL MYELOMA
     Dosage: 90 MG, EVERY 3 MONTHS
     Dates: start: 20000530
  2. HYDROCHLOROTHIAZIDE [Concomitant]
  3. LISINOPRIL/HCTZ [Concomitant]
  4. THALIDOMIDE [Concomitant]
     Dates: start: 200503, end: 20090716
  5. DECADRAN [Concomitant]
  6. AMIFOSTINE [Concomitant]
  7. MELPHALAN [Concomitant]
  8. PRILOSEC [Concomitant]
  9. PROCRIT                            /00909301/ [Concomitant]
  10. VALTREX [Concomitant]
  11. BACTRIM [Concomitant]
  12. FLUCONAZOLE [Concomitant]
  13. CHLORHEXIDINE [Concomitant]
  14. ZOFRAN [Concomitant]
  15. ATIVAN [Concomitant]
  16. COMPAZINE [Concomitant]
  17. ACYCLOVIR [Concomitant]
  18. TISSUE PLASMINOGEN ACTIVATOR, RECOMBINATIVE [Concomitant]
  19. IMIPENEM [Concomitant]
  20. AMPICILLIN [Concomitant]
     Dosage: 500 MG,
  21. CIPRO ^MILES^ [Concomitant]
     Dosage: 500 MG,
  22. MAGIC MOUTHWASH [Concomitant]
  23. LEVAQUIN [Concomitant]
  24. FLAGYL [Concomitant]
  25. PREMPRO [Concomitant]
  26. AUGMENTIN [Concomitant]
  27. DOXYCYCLINE [Concomitant]
  28. SULFAMETHOXAZOLE [Concomitant]
  29. PENICILLIN ^GRUNENTHAL^ [Concomitant]
  30. BIAXIN XL [Concomitant]
  31. PROMETHAZINE DM [Concomitant]
  32. VICODIN [Concomitant]
  33. RESTYLANE [Concomitant]
  34. REVLIMID [Concomitant]
     Dosage: 25 MG, DAILY
     Route: 048
  35. TRIAMTERENE AND HYDROCHLOROTHIAZID ^HARRIS^ [Concomitant]
  36. ZOLOFT (SERTRALINE HYDROCHLORIDE) [Concomitant]
     Dosage: 50 MG, DAILY
  37. PEPCID [Concomitant]
     Dosage: 20 MG, BID
  38. ACETYLSALICYLIC ACID [Concomitant]
     Dosage: 81 MG, DAILY
     Route: 048
  39. CARFILZOMIB [Concomitant]

REACTIONS (85)
  - Syncope [Unknown]
  - Headache [Unknown]
  - Back pain [Unknown]
  - Haematoma [Unknown]
  - Pneumonia [Unknown]
  - Neuropathy peripheral [Unknown]
  - Cardiomegaly [Unknown]
  - Spinal osteoarthritis [Unknown]
  - Basal cell carcinoma [Unknown]
  - Osteonecrosis of jaw [Unknown]
  - Pain [Unknown]
  - Discomfort [Unknown]
  - Scar [Unknown]
  - Mastication disorder [Unknown]
  - Emotional distress [Unknown]
  - Anxiety [Unknown]
  - Life expectancy shortened [Unknown]
  - Injury [Unknown]
  - Anhedonia [Unknown]
  - Physical disability [Unknown]
  - Pain in jaw [Unknown]
  - Bone disorder [Unknown]
  - Paraesthesia oral [Unknown]
  - Fistula [Unknown]
  - Hypertension [Unknown]
  - Nausea [Unknown]
  - Vomiting [Unknown]
  - Mucosal inflammation [Unknown]
  - Osteoporosis [Unknown]
  - Osteopenia [Unknown]
  - Ear pain [Unknown]
  - Sinus congestion [Unknown]
  - Primary sequestrum [Unknown]
  - Uterine prolapse [Unknown]
  - Squamous cell carcinoma [Unknown]
  - Second primary malignancy [Unknown]
  - Cough [Unknown]
  - Lichenoid keratosis [Unknown]
  - Melanocytic naevus [Unknown]
  - Bacterial vaginosis [Unknown]
  - Hyperkeratosis [Unknown]
  - Infectious disease carrier [Unknown]
  - Urethral obstruction [Unknown]
  - Nephrolithiasis [Unknown]
  - Flank pain [Unknown]
  - Lung infiltration [Unknown]
  - Renal cyst [Unknown]
  - Atelectasis [Unknown]
  - Hyperlipidaemia [Unknown]
  - Hypokalaemia [Unknown]
  - Adrenal insufficiency [Unknown]
  - Pancytopenia [Unknown]
  - Sepsis [Unknown]
  - Arteriosclerosis coronary artery [Unknown]
  - Breast mass [Unknown]
  - Foot deformity [Unknown]
  - Aortic valve incompetence [Unknown]
  - Mitral valve incompetence [Unknown]
  - Subcutaneous emphysema [Unknown]
  - Exostosis [Unknown]
  - Fall [Unknown]
  - Swelling [Unknown]
  - Carotid artery stenosis [Unknown]
  - Vulvovaginal pruritus [Unknown]
  - Vulvovaginal dryness [Unknown]
  - Tendon rupture [Unknown]
  - Rotator cuff syndrome [Unknown]
  - Hypoaesthesia [Unknown]
  - Hypercholesterolaemia [Unknown]
  - Carpal tunnel syndrome [Unknown]
  - Bone lesion [Unknown]
  - Ecchymosis [Unknown]
  - Plasma cell myeloma [Unknown]
  - Malignant neoplasm progression [Unknown]
  - Diverticulitis [Unknown]
  - Pyrexia [Unknown]
  - Fatigue [Unknown]
  - Chills [Unknown]
  - Diarrhoea [Unknown]
  - Decreased appetite [Unknown]
  - Pain in extremity [Unknown]
  - Tinnitus [Unknown]
  - Hypotension [Unknown]
  - Sinus bradycardia [Unknown]
  - Abdominal pain [Unknown]
